FAERS Safety Report 14564874 (Version 1)
Quarter: 2018Q1

REPORT INFORMATION
  Report Type: Report from Study
  Country: JP (occurrence: JP)
  Receive Date: 20180223
  Receipt Date: 20180223
  Transmission Date: 20180509
  Serious: Yes (Other)
  Sender: FDA-Public Use
  Company Number: JP-CIPLA LTD.-2018JP07883

PATIENT

DRUGS (1)
  1. EPIRUBICIN [Suspect]
     Active Substance: EPIRUBICIN
     Indication: HEPATOCELLULAR CARCINOMA
     Dosage: IN 6 ML OF SOLUTION SUSPENDED WITH 6 ML OF LIPIODOL (10 MG/ML).
     Route: 065

REACTIONS (1)
  - Adverse event [Unknown]
